FAERS Safety Report 7954106-0 (Version None)
Quarter: 2011Q4

REPORT INFORMATION
  Report Type: 
  Country: None (occurrence: None)
  Receive Date: 20111202
  Receipt Date: 20111121
  Transmission Date: 20120403
  Serious: Yes (Hospitalization, Other)
  Sender: FDA-Public Use
  Company Number: US-EISAI INC-E7273-00253-CLI-US

PATIENT
  Sex: Male
  Weight: 105 kg

DRUGS (3)
  1. TARGRETIN [Suspect]
     Route: 048
     Dates: start: 20110810, end: 20110906
  2. TARGRETIN [Suspect]
     Route: 048
     Dates: start: 20111005
  3. TARGRETIN [Suspect]
     Route: 048
     Dates: start: 20110922, end: 20111004

REACTIONS (2)
  - CARDIAC FAILURE CONGESTIVE [None]
  - HAEMATOCHEZIA [None]
